FAERS Safety Report 26092074 (Version 1)
Quarter: 2025Q4

REPORT INFORMATION
  Report Type: Spontaneous
  Country: US (occurrence: None)
  Receive Date: 20251126
  Receipt Date: 20251126
  Transmission Date: 20260118
  Serious: No
  Sender: AMERICAN REGENT
  Company Number: US-AMERICAN REGENT INC-2025002728

PATIENT
  Sex: Female

DRUGS (3)
  1. VENOFER [Suspect]
     Active Substance: IRON SUCROSE
     Indication: Iron deficiency
     Dosage: 200 MILLIGRAM IN 100 ML NORMAL SALINE
     Route: 065
  2. VENOFER [Suspect]
     Active Substance: IRON SUCROSE
     Indication: Haemorrhage
     Dosage: UNK
     Route: 065
  3. VENOFER [Suspect]
     Active Substance: IRON SUCROSE
     Indication: Heavy menstrual bleeding

REACTIONS (1)
  - Drug intolerance [Unknown]
